FAERS Safety Report 17168748 (Version 1)
Quarter: 2019Q4

REPORT INFORMATION
  Report Type: Report from Study
  Country: US (occurrence: US)
  Receive Date: 20191218
  Receipt Date: 20191218
  Transmission Date: 20200122
  Serious: Yes (Death)
  Sender: FDA-Public Use
  Company Number: US-TAIHO ONCOLOGY  INC-EU-2019-04176

PATIENT
  Age: 58 Year
  Sex: Female
  Weight: 65.32 kg

DRUGS (16)
  1. CHLORHEXIDINE [Concomitant]
     Active Substance: CHLORHEXIDINE
     Dosage: NI
  2. CLARITIN [Concomitant]
     Active Substance: LORATADINE
     Dosage: NI
  3. DENTA 5000+ [Concomitant]
     Dosage: NI
  4. MORPHINE [Concomitant]
     Active Substance: MORPHINE
     Dosage: NI
  5. NYSTATIN. [Concomitant]
     Active Substance: NYSTATIN
     Dosage: NI
  6. LIDOCAINE. [Concomitant]
     Active Substance: LIDOCAINE
     Dosage: NI
  7. POTASSIUM [Concomitant]
     Active Substance: POTASSIUM
     Dosage: NI
  8. ZOLPIDEM [Concomitant]
     Active Substance: ZOLPIDEM TARTRATE
     Dosage: NI
  9. CALCIUM [Concomitant]
     Active Substance: CALCIUM
     Dosage: NI
  10. COLACE [Concomitant]
     Active Substance: DOCUSATE SODIUM
     Dosage: NI
  11. LACTULOSE. [Concomitant]
     Active Substance: LACTULOSE
     Dosage: NI
  12. APAP [Concomitant]
     Active Substance: ACETAMINOPHEN
     Dosage: NI
  13. XANAX [Concomitant]
     Active Substance: ALPRAZOLAM
     Dosage: NI
  14. IMODIUM [Concomitant]
     Active Substance: LOPERAMIDE HYDROCHLORIDE
     Dosage: NI
  15. LONSURF [Suspect]
     Active Substance: TIPIRACIL HYDROCHLORIDE\TRIFLURIDINE
     Indication: RECTOSIGMOID CANCER
     Dosage: DISCONTINUED ON CYCLE 2
     Route: 048
     Dates: start: 20191019, end: 2019
  16. BENADRYL [Concomitant]
     Active Substance: DIPHENHYDRAMINE HYDROCHLORIDE
     Dosage: NI

REACTIONS (1)
  - Death [Fatal]

NARRATIVE: CASE EVENT DATE: 20191203
